FAERS Safety Report 10073101 (Version 2)
Quarter: 2014Q2

REPORT INFORMATION
  Report Type: Spontaneous
  Country: DE (occurrence: DE)
  Receive Date: 20140411
  Receipt Date: 20140415
  Transmission Date: 20141212
  Serious: Yes (Other)
  Sender: FDA-Public Use
  Company Number: DE-B.I. PHARMACEUTICALS,INC./RIDGEFIELD-2014-BI-15950DE

PATIENT
  Age: 74 Year
  Sex: Male
  Weight: 99 kg

DRUGS (3)
  1. TWYNSTA [Suspect]
     Indication: HYPERTENSION
     Dosage: 1 ANZ
     Route: 065
     Dates: start: 201006
  2. MARCUMAR [Concomitant]
     Indication: ATRIAL FIBRILLATION
     Route: 065
  3. FORMOTEROL [Concomitant]
     Indication: CHRONIC OBSTRUCTIVE PULMONARY DISEASE
     Route: 065

REACTIONS (2)
  - Blood glucose increased [Not Recovered/Not Resolved]
  - Diabetes mellitus [Unknown]
